FAERS Safety Report 26207370 (Version 1)
Quarter: 2025Q4

REPORT INFORMATION
  Report Type: Spontaneous
  Country: US (occurrence: US)
  Receive Date: 20251229
  Receipt Date: 20251229
  Transmission Date: 20260118
  Serious: Yes (Hospitalization)
  Sender: DR REDDYS
  Company Number: None

PATIENT
  Age: 64 Year
  Sex: Male
  Weight: 61.7 kg

DRUGS (14)
  1. PANTOPRAZOLE [Suspect]
     Active Substance: PANTOPRAZOLE
     Indication: Product used for unknown indication
     Dosage: HE HAD BEEN ON PROTON PUMP INHIBITOR (PPI) THERAPY FOR MORE THAN FIVE YEARS
     Route: 065
  2. CRESTOR [Suspect]
     Active Substance: ROSUVASTATIN CALCIUM
     Indication: Coronary artery disease
     Dates: start: 20230530, end: 20231016
  3. CRESTOR [Suspect]
     Active Substance: ROSUVASTATIN CALCIUM
     Dates: start: 20231016, end: 20250507
  4. VITAMIN C [Concomitant]
     Active Substance: ASCORBIC ACID
     Indication: Product used for unknown indication
  5. CARVEDILOL [Concomitant]
     Active Substance: CARVEDILOL
     Indication: Product used for unknown indication
     Dosage: 3.125 MG TWICE DAILY
  6. DIAZEPAM [Concomitant]
     Active Substance: DIAZEPAM
     Indication: Product used for unknown indication
  7. BUDESONIDE [Concomitant]
     Active Substance: BUDESONIDE
     Indication: Product used for unknown indication
  8. FISH OIL [Concomitant]
     Active Substance: FISH OIL
     Indication: Product used for unknown indication
  9. FLUTICASONE [Concomitant]
     Active Substance: FLUTICASONE
     Indication: Product used for unknown indication
     Dosage: INHALER
     Route: 055
  10. FLUTICASONE [Concomitant]
     Active Substance: FLUTICASONE
     Dosage: FLUTICASONE NASAL SPRAY ONE SPRAY EACH NOSTRIL DAILY
     Route: 045
  11. GABAPENTIN [Concomitant]
     Active Substance: GABAPENTIN
     Indication: Product used for unknown indication
  12. OLOPATADINE [Concomitant]
     Active Substance: OLOPATADINE
     Indication: Product used for unknown indication
     Dosage: OPHTHALMIC SOLUTION 0.1 % TWICE A DAY
     Route: 047
  13. RIMEGEPANT [Concomitant]
     Active Substance: RIMEGEPANT
     Indication: Product used for unknown indication
     Dosage: 75 MG EVERY OTHER DAY
  14. ZINC SULFATE [Concomitant]
     Active Substance: ZINC SULFATE
     Indication: Product used for unknown indication

REACTIONS (1)
  - Acute kidney injury [Recovered/Resolved]

NARRATIVE: CASE EVENT DATE: 20240101
